FAERS Safety Report 5369651-4 (Version None)
Quarter: 2007Q2

REPORT INFORMATION
  Report Type: 
  Country: None (occurrence: None)
  Receive Date: 20070625
  Receipt Date: 20070613
  Transmission Date: 20071010
  Serious: Yes (Other)
  Sender: FDA-Public Use
  Company Number: US-PFIZER INC-2007033856

PATIENT
  Sex: Female
  Weight: 47.6 kg

DRUGS (8)
  1. CHANTIX [Suspect]
     Indication: SMOKING CESSATION THERAPY
  2. OMEPRAZOLE [Concomitant]
     Route: 048
  3. AMLODIPINE [Concomitant]
  4. FOLIC ACID [Concomitant]
  5. METOPROLOL SUCCINATE [Concomitant]
  6. FISH OIL [Concomitant]
  7. CALCIUM CHLORIDE [Concomitant]
  8. CITALOPRAM HYDROBROMIDE [Concomitant]

REACTIONS (5)
  - ABDOMINAL PAIN UPPER [None]
  - COELIAC DISEASE [None]
  - NAUSEA [None]
  - STOMACH DISCOMFORT [None]
  - WEIGHT DECREASED [None]
